FAERS Safety Report 17118590 (Version 10)
Quarter: 2024Q1

REPORT INFORMATION
  Report Type: Spontaneous
  Country: PK (occurrence: PK)
  Receive Date: 20191206
  Receipt Date: 20240327
  Transmission Date: 20240410
  Serious: Yes (Other)
  Sender: FDA-Public Use
  Company Number: PK-PFIZER INC-2019518552

PATIENT
  Age: 19 Year
  Sex: Male
  Weight: 49 kg

DRUGS (20)
  1. ENBREL [Suspect]
     Active Substance: ETANERCEPT
     Indication: Juvenile spondyloarthritis
     Dosage: UNK
     Route: 065
     Dates: start: 20191128
  2. ENBREL [Suspect]
     Active Substance: ETANERCEPT
     Indication: Ankylosing spondylitis
     Dosage: 50 MG, WEEKLY
     Route: 058
  3. ENBREL [Suspect]
     Active Substance: ETANERCEPT
     Indication: Osteoarthritis
     Dosage: 50 MG, WEEKLY
     Route: 058
     Dates: start: 20201019
  4. ENBREL [Suspect]
     Active Substance: ETANERCEPT
     Dosage: 50 MG, WEEKLY
     Route: 058
  5. ENBREL [Suspect]
     Active Substance: ETANERCEPT
     Dosage: 50 MG, EVERY TWO WEEKS
     Route: 058
     Dates: start: 20211212
  6. ENBREL [Suspect]
     Active Substance: ETANERCEPT
     Dosage: 50 MG, WEEKLY
     Route: 058
     Dates: start: 2023
  7. METHOTREXATE [Concomitant]
     Active Substance: METHOTREXATE
     Dosage: 10 MG, WEEKLY (AFTER MEAL, CONTINUE, 1HRS AFTER BREAKFAST)
     Dates: start: 201906
  8. METHOTREXATE [Concomitant]
     Active Substance: METHOTREXATE
     Dosage: UNK, (0 + 0 + 0 + 0, AFTER MEAL, CONTINUE)
  9. FOLIC ACID [Concomitant]
     Active Substance: FOLIC ACID
     Dosage: 5 MG, 2X/WEEK (MON TUE)
  10. FOLIC ACID [Concomitant]
     Active Substance: FOLIC ACID
     Dosage: UNK, (1 X TABLETS, 3 TIMES A WEEK, AFTER MEAL, CONTINUE MON TUE WED, SKIP ON METHOTREXATE DAY)
  11. SULFASALAZINE [Concomitant]
     Active Substance: SULFASALAZINE
     Dosage: 1000 MG, 2X/DAY (2 TABLETS MORNING+2 TABLETS EVENING AFTER MEAL TO CONTINUE)
     Dates: start: 2015, end: 202011
  12. ACECLOFENAC [Concomitant]
     Active Substance: ACECLOFENAC
     Indication: Pain
     Dosage: UNK (1+1)
  13. ACECLOFENAC [Concomitant]
     Active Substance: ACECLOFENAC
     Dosage: 100 MG, 1X/DAY(1X OD FEW WEEKS)
  14. ACECLOFENAC [Concomitant]
     Active Substance: ACECLOFENAC
     Dosage: 100 MG 2-3 TIMES/WEEK
  15. ACECLOFENAC [Concomitant]
     Active Substance: ACECLOFENAC
     Dosage: 0 + 0 + 1 + 0 AFTER MEAL 1 TAB IN EVENING AFTER MEAL AS PER NEED
  16. NEXIUM [Concomitant]
     Active Substance: ESOMEPRAZOLE MAGNESIUM
     Dosage: 20 MG, ONCE CAPSULE ONCE A DAY BEFORE MEAL TO CONTINUE, 1 WHEN REQUIRED
  17. Sangobion [Concomitant]
     Dosage: 1 DF, 1X/DAY (ONE CAPSULE IN AFTERNOON AFTER MEAL TO CONTINUE, OFF ON METHOTREXATE DAYS DAY 1)
  18. Sangobion [Concomitant]
     Dosage: UNK, 0 + 1 + 0 + 0 AFTER MEAL, 1 TAB IN EVE AFTER MEAL FOR 3 MNTH HR OF LUNCH. OFF ON MTX DAYS DAY 1
  19. EVION [Concomitant]
     Active Substance: .ALPHA.-TOCOPHEROL ACETATE
     Dosage: UNK, 1 X CAPSULES, ONCE A DAY, AFTER MEAL, FOR 3 MONTHS
  20. DICLOFENAC SODIUM [Concomitant]
     Active Substance: DICLOFENAC\DICLOFENAC SODIUM
     Dosage: UNK, X APPLY LOCALLY, TWICE DAILY WHEN REQUIRED

REACTIONS (28)
  - Nephrolithiasis [Unknown]
  - Haematuria [Unknown]
  - Red blood cell sedimentation rate increased [Recovering/Resolving]
  - Alanine aminotransferase increased [Unknown]
  - Aspartate aminotransferase increased [Unknown]
  - Gingival bleeding [Unknown]
  - Rash [Unknown]
  - Mouth ulceration [Unknown]
  - Pain in extremity [Unknown]
  - Infection [Unknown]
  - Musculoskeletal stiffness [Unknown]
  - Joint range of motion decreased [Unknown]
  - Cough [Recovered/Resolved]
  - Pyrexia [Recovered/Resolved]
  - Back pain [Recovered/Resolved]
  - Ocular hyperaemia [Unknown]
  - Urinary tract infection [Recovered/Resolved]
  - Flank pain [Recovered/Resolved]
  - Alopecia [Unknown]
  - Diarrhoea [Unknown]
  - Joint swelling [Unknown]
  - Joint warmth [Unknown]
  - Dengue fever [Unknown]
  - Arthralgia [Unknown]
  - Joint effusion [Unknown]
  - Arthropathy [Unknown]
  - White blood cells urine positive [Unknown]
  - Off label use [Unknown]

NARRATIVE: CASE EVENT DATE: 20191030
